FAERS Safety Report 9298139 (Version 1)
Quarter: 2012Q4

REPORT INFORMATION
  Report Type: Spontaneous
  Country: GB (occurrence: None)
  Receive Date: 20121031
  Receipt Date: 20121031
  Transmission Date: 20130627
  Serious: Yes (Other)
  Sender: FDA-Public Use
  Company Number: AUR-APU-2012-04377

PATIENT
  Sex: Male

DRUGS (4)
  1. MIRTAZAPINE (MIRTAZAPINE) [Suspect]
     Indication: PANIC ATTACKS
  2. MIRTAZAPINE (MIRTAZAPINE) [Suspect]
     Indication: PANIC ATTACKS
  3. MIRTAZAPINE (MIRTAZAPINE) [Suspect]
     Indication: PANIC ATTACKS
  4. DIAZEPAM (DIAZEPAM) [Concomitant]

REACTIONS (3)
  - Suicidal ideation [None]
  - Drug ineffective [None]
  - Off label use [None]
